FAERS Safety Report 10860662 (Version 1)
Quarter: 2015Q1

REPORT INFORMATION
  Report Type: Spontaneous
  Country: DE (occurrence: DE)
  Receive Date: 20150224
  Receipt Date: 20150224
  Transmission Date: 20150721
  Serious: Yes (Congenital Anomaly)
  Sender: FDA-Public Use
  Company Number: DE-AMGEN-DEUSP2015015776

PATIENT
  Sex: Female
  Weight: 3.43 kg

DRUGS (5)
  1. ENBREL [Suspect]
     Active Substance: ETANERCEPT
     Indication: ANKYLOSING SPONDYLITIS
     Dosage: 50 MG, EVERY 2 WEEKS, 0. - 40.5. GESTATIONAL WEEK
     Route: 064
     Dates: start: 20130817, end: 20140529
  2. DICLOFENAC [Concomitant]
     Active Substance: DICLOFENAC
     Indication: ANKYLOSING SPONDYLITIS
     Dosage: 75 MG, 1X/DAY, 20.5. - 26. GESTATIONAL WEEK
     Route: 064
     Dates: start: 20140109, end: 20140215
  3. FOLIO                              /00349401/ [Concomitant]
     Indication: PROPHYLAXIS OF NEURAL TUBE DEFECT
     Dosage: 0.4 MG, 1X/DAY, 0. - 40.5. GESTATIONAL WEEK
     Route: 064
     Dates: start: 20130817, end: 20140519
  4. PREDNISOLON                        /00016201/ [Concomitant]
     Active Substance: PREDNISOLONE
     Indication: ANKYLOSING SPONDYLITIS
     Dosage: 20 MG, 1X/DAY, 22.3. GESTATIONAL WEEK
     Route: 064
     Dates: start: 20140121, end: 20140121
  5. BEGRIPAL [Concomitant]
     Indication: IMMUNISATION
     Dosage: 1 DF, SINGLE, 12.4. GESTATIONAL WEEK
     Route: 064
     Dates: start: 20131113, end: 20131113

REACTIONS (4)
  - Kidney duplex [Not Recovered/Not Resolved]
  - Congenital hydronephrosis [Not Recovered/Not Resolved]
  - Vesicoureteric reflux [Not Recovered/Not Resolved]
  - Maternal exposure during pregnancy [Unknown]
